FAERS Safety Report 12048516 (Version 1)
Quarter: 2016Q1

REPORT INFORMATION
  Report Type: Spontaneous
  Country: US (occurrence: US)
  Receive Date: 20160208
  Receipt Date: 20160208
  Transmission Date: 20160526
  Serious: No
  Sender: FDA-Public Use
  Company Number: US-ASTRAZENECA-2016SE09221

PATIENT
  Sex: Female

DRUGS (3)
  1. SEROQUEL [Suspect]
     Active Substance: QUETIAPINE FUMARATE
     Dosage: 100 MG UNKNOWN (GENERIC)
     Route: 065
     Dates: start: 201401, end: 201509
  2. SEROQUEL [Suspect]
     Active Substance: QUETIAPINE FUMARATE
     Dosage: 25 MG UNKNOWN (GENERIC)
     Route: 065
     Dates: start: 201401, end: 201509
  3. SEROQUEL [Suspect]
     Active Substance: QUETIAPINE FUMARATE
     Dosage: 50 MG UNKNOWN (GENERIC)
     Route: 065
     Dates: start: 201401, end: 201509

REACTIONS (15)
  - Vertigo [Unknown]
  - Headache [Unknown]
  - Dizziness [Unknown]
  - Balance disorder [Unknown]
  - Nausea [Unknown]
  - Visual impairment [Unknown]
  - Insomnia [Unknown]
  - Somnolence [Unknown]
  - Fatigue [Unknown]
  - Nervousness [Unknown]
  - Photopsia [Unknown]
  - Restlessness [Unknown]
  - Agitation [Unknown]
  - Hyperhidrosis [Unknown]
  - Hyperacusis [Unknown]
